FAERS Safety Report 9457355 (Version 1)
Quarter: 2013Q3

REPORT INFORMATION
  Report Type: Report from Study
  Country: BR (occurrence: BR)
  Receive Date: 20130814
  Receipt Date: 20130814
  Transmission Date: 20140515
  Serious: Yes (Hospitalization, Other)
  Sender: FDA-Public Use
  Company Number: PHHY2013BR087070

PATIENT
  Age: 79 Year
  Sex: Female

DRUGS (5)
  1. DIOVAN [Suspect]
     Indication: HYPERTENSION
     Dosage: UNK UKN, QD
     Route: 048
  2. CLOPIDOGREL [Concomitant]
     Route: 048
  3. CLONAZEPAM [Concomitant]
     Route: 048
  4. SERTRALINE [Concomitant]
     Route: 048
  5. SUSTRATE [Concomitant]
     Route: 048

REACTIONS (1)
  - Pneumonia [Recovered/Resolved]
